FAERS Safety Report 18430506 (Version 2)
Quarter: 2020Q4

REPORT INFORMATION
  Report Type: Spontaneous
  Country: HU (occurrence: HU)
  Receive Date: 20201027
  Receipt Date: 20201121
  Transmission Date: 20210114
  Serious: Yes (Other)
  Sender: FDA-Public Use
  Company Number: NVSC2020HU279906

PATIENT
  Age: 44 Year
  Sex: Female

DRUGS (5)
  1. REVOLADE [Suspect]
     Active Substance: ELTROMBOPAG
     Dosage: UNK
     Route: 065
  2. VINCRISTINE [Concomitant]
     Active Substance: VINCRISTINE
     Indication: PRODUCT USED FOR UNKNOWN INDICATION
     Dosage: UNK
     Route: 065
     Dates: start: 201902, end: 202004
  3. PREDNISOLONE. [Concomitant]
     Active Substance: PREDNISOLONE
     Indication: PRODUCT USED FOR UNKNOWN INDICATION
     Dosage: UNK
     Route: 065
     Dates: start: 201902, end: 202002
  4. REVOLADE [Suspect]
     Active Substance: ELTROMBOPAG
     Dosage: 25 MG, QD
     Route: 065
  5. REVOLADE [Suspect]
     Active Substance: ELTROMBOPAG
     Indication: IMMUNE THROMBOCYTOPENIA
     Dosage: 50 MG, QD
     Route: 065
     Dates: start: 201605

REACTIONS (14)
  - Haemorrhage [Unknown]
  - Thrombocytopenia [Recovered/Resolved]
  - Mucosal haemorrhage [Unknown]
  - Platelet count decreased [Recovered/Resolved]
  - Leukocytosis [Unknown]
  - Marginal zone lymphoma [Unknown]
  - Purpura [Unknown]
  - Lymphocyte count increased [Unknown]
  - CD20 antigen positive [Unknown]
  - B-lymphocyte abnormalities [Unknown]
  - Thrombocytopenia [Recovered/Resolved]
  - Lymphocyte count increased [Unknown]
  - White blood cell count increased [Unknown]
  - B-cell lymphoma [Unknown]

NARRATIVE: CASE EVENT DATE: 2018
